FAERS Safety Report 13622528 (Version 1)
Quarter: 2017Q2

REPORT INFORMATION
  Report Type: Spontaneous
  Country: US (occurrence: US)
  Receive Date: 20170607
  Receipt Date: 20170607
  Transmission Date: 20170830
  Serious: No
  Sender: FDA-Public Use
  Company Number: US-ROCHE-780511

PATIENT
  Sex: Male
  Weight: 122.5 kg

DRUGS (2)
  1. INSULIN [Concomitant]
     Active Substance: INSULIN NOS
     Route: 065
  2. FUZEON [Suspect]
     Active Substance: ENFUVIRTIDE
     Indication: HEPATITIS C
     Route: 058

REACTIONS (3)
  - Injection site abscess [Not Recovered/Not Resolved]
  - Product quality issue [Unknown]
  - Urticaria [Not Recovered/Not Resolved]
